FAERS Safety Report 9742293 (Version 1)
Quarter: 2013Q4

REPORT INFORMATION
  Report Type: Other
  Country: US (occurrence: US)
  Receive Date: 20131210
  Receipt Date: 20131210
  Transmission Date: 20140711
  Serious: Yes (Death, Hospitalization, Other)
  Sender: FDA-Public Use
  Company Number: US-SHIRE-ALL1-2013-08538

PATIENT
  Age: 62 Year
  Sex: Male

DRUGS (2)
  1. FOSRENOL [Suspect]
     Indication: PRODUCT USED FOR UNKNOWN INDICATION
     Dosage: 1000 MG, OTHER (BEFORE EACH MEAL)
     Route: 048
  2. INSULIN [Concomitant]
     Indication: DIABETES MELLITUS
     Dosage: UNK UNK, UNKNOWN
     Route: 065

REACTIONS (8)
  - Staphylococcal infection [Fatal]
  - Myocardial infarction [Recovered/Resolved]
  - Middle ear disorder [Unknown]
  - Adverse event [Recovered/Resolved]
  - Body height decreased [Not Recovered/Not Resolved]
  - Otorrhoea [Recovered/Resolved]
  - Weight decreased [Unknown]
  - Ear disorder [Recovered/Resolved]
